FAERS Safety Report 10088899 (Version 2)
Quarter: 2014Q2

REPORT INFORMATION
  Report Type: Report from Study
  Country: US (occurrence: US)
  Receive Date: 20140421
  Receipt Date: 20140421
  Transmission Date: 20141212
  Serious: Yes (Other)
  Sender: FDA-Public Use
  Company Number: PHEH2013US025603

PATIENT
  Age: 62 Year
  Sex: Female
  Weight: 66.12 kg

DRUGS (2)
  1. GLEEVEC [Suspect]
     Indication: GASTROINTESTINAL STROMAL TUMOUR
     Dosage: 400 MG, QD
     Route: 048
     Dates: start: 20131010
  2. GLEEVEC [Suspect]
     Indication: SMALL INTESTINE CARCINOMA

REACTIONS (5)
  - Intussusception [Unknown]
  - Fluid retention [Unknown]
  - Eye swelling [Unknown]
  - White blood cell count decreased [Unknown]
  - Pterygium [Unknown]
